FAERS Safety Report 10670113 (Version 5)
Quarter: 2016Q1

REPORT INFORMATION
  Report Type: Spontaneous
  Country: US (occurrence: US)
  Receive Date: 20141223
  Receipt Date: 20160108
  Transmission Date: 20160525
  Serious: Yes (Other)
  Sender: FDA-Public Use
  Company Number: US-AMGEN-USASP2014098512

PATIENT
  Age: 38 Year
  Sex: Female

DRUGS (3)
  1. DOCOSAHEXAENOIC ACID [Concomitant]
     Active Substance: DOCONEXENT
     Dosage: 500 MG, DAILY
     Route: 048
     Dates: start: 201412
  2. ENBREL [Suspect]
     Active Substance: ETANERCEPT
     Indication: HIDRADENITIS
     Dosage: 50 MG, QWK
     Route: 058
     Dates: start: 201202, end: 201412
  3. PRENATAL                           /00231801/ [Concomitant]
     Active Substance: VITAMINS
     Dosage: DAILY
     Route: 048
     Dates: start: 201412

REACTIONS (9)
  - Oligohydramnios [Unknown]
  - Premature labour [Unknown]
  - Cervical incompetence [Unknown]
  - Nausea [Not Recovered/Not Resolved]
  - Maternal exposure during pregnancy [Recovered/Resolved]
  - Caesarean section [Recovered/Resolved]
  - Placental disorder [Unknown]
  - Vomiting in pregnancy [Not Recovered/Not Resolved]
  - False labour [Unknown]

NARRATIVE: CASE EVENT DATE: 2014
